FAERS Safety Report 4992543-7 (Version None)
Quarter: 2006Q1

REPORT INFORMATION
  Report Type: 
  Country: None (occurrence: None)
  Receive Date: 20060314
  Receipt Date: 20060207
  Transmission Date: 20060701
  Serious: No
  Sender: FDA-Public Use
  Company Number: 2006-00268

PATIENT
  Sex: 0

DRUGS (2)
  1. VELCADE [Suspect]
  2. DEXAMETHASONE [Suspect]

REACTIONS (1)
  - ABDOMINAL PAIN [None]
